FAERS Safety Report 9687917 (Version 1)
Quarter: 2013Q4

REPORT INFORMATION
  Report Type: Spontaneous
  Country: US (occurrence: US)
  Receive Date: 20131114
  Receipt Date: 20131114
  Transmission Date: 20140711
  Serious: Yes (Hospitalization)
  Sender: FDA-Public Use
  Company Number: US-BAYER-2013-136769

PATIENT
  Age: 43 Year
  Sex: Female
  Weight: 73.47 kg

DRUGS (15)
  1. YAZ [Suspect]
     Indication: ACNE
     Dosage: UNK
     Route: 048
     Dates: start: 2005
  2. YAZ [Suspect]
     Indication: PREMENSTRUAL DYSPHORIC DISORDER
  3. YAZ [Suspect]
     Indication: PREMENSTRUAL SYNDROME
  4. YASMIN [Suspect]
     Indication: ACNE
     Dosage: UNK
     Route: 048
     Dates: start: 2005
  5. YASMIN [Suspect]
     Indication: PREMENSTRUAL DYSPHORIC DISORDER
  6. YASMIN [Suspect]
     Indication: PREMENSTRUAL SYNDROME
  7. CYTOMEL [Concomitant]
     Indication: THYROID DISORDER
     Dosage: UNK
     Dates: start: 2005
  8. ZINC [Concomitant]
     Dosage: UNK, DAILY
     Dates: start: 2009, end: 2012
  9. VITAMIN B12 [CYANOCOBALAMIN] [Concomitant]
     Dosage: UNK, DAILY
     Dates: start: 2009, end: 2012
  10. ADVIL [Concomitant]
     Dosage: UNK, AS NEEDED
     Dates: start: 2000
  11. SYNTHROID [Concomitant]
     Dosage: UNK, DAILY
     Dates: start: 2005
  12. MELOXICAM [Concomitant]
     Dosage: 15 MG, UNK
  13. NABUMETONE [Concomitant]
     Dosage: 500 MG, UNK
  14. LORAZEPAM [Concomitant]
     Dosage: 0.5 MG, UNK
  15. GABAPENTIN [Concomitant]
     Dosage: 300 MG, UNK

REACTIONS (3)
  - Cerebrovascular accident [None]
  - Depression [None]
  - Off label use [None]
